FAERS Safety Report 16038546 (Version 1)
Quarter: 2019Q1

REPORT INFORMATION
  Report Type: Report from Study
  Country: US (occurrence: US)
  Receive Date: 20190305
  Receipt Date: 20190305
  Transmission Date: 20190418
  Serious: No
  Sender: FDA-Public Use
  Company Number: PHEH2019US009078

PATIENT
  Sex: Female

DRUGS (1)
  1. ENTRESTO [Suspect]
     Active Substance: SACUBITRIL\VALSARTAN
     Indication: LYMPHOEDEMA
     Route: 065

REACTIONS (7)
  - Muscular weakness [Unknown]
  - Muscle spasms [Unknown]
  - Concomitant disease aggravated [Unknown]
  - Arthropathy [Unknown]
  - Product use in unapproved indication [Unknown]
  - Asthenia [Unknown]
  - Gait disturbance [Unknown]
